FAERS Safety Report 6706371-5 (Version None)
Quarter: 2010Q2

REPORT INFORMATION
  Report Type: 
  Country: None (occurrence: None)
  Receive Date: 20100503
  Receipt Date: 20100420
  Transmission Date: 20101027
  Serious: Yes (Other)
  Sender: FDA-Public Use
  Company Number: PHHY2010AR24776

PATIENT
  Sex: Female

DRUGS (1)
  1. RASILEZ D [Suspect]
     Indication: HYPERTENSION
     Dosage: UNK, (150/12.5 MG)

REACTIONS (6)
  - APHASIA [None]
  - BLOOD PRESSURE INCREASED [None]
  - COUGH [None]
  - DYSPHONIA [None]
  - SNEEZING [None]
  - THROAT IRRITATION [None]
